FAERS Safety Report 11071949 (Version 1)
Quarter: 2015Q2

REPORT INFORMATION
  Report Type: Spontaneous
  Country: JP (occurrence: None)
  Receive Date: 20150424
  Receipt Date: 20150424
  Transmission Date: 20150821
  Serious: Yes (Other)
  Sender: FDA-Public Use
  Company Number: 2015HINLIT0337

PATIENT
  Age: 67 Year
  Sex: Female

DRUGS (3)
  1. BERAPOST (BERAPOST) [Concomitant]
  2. AMBRISENTAN (AMBRISENTAN) [Concomitant]
     Active Substance: AMBRISENTAN
     Indication: PULMONARY ARTERIAL HYPERTENSION
  3. SILDENAFIL (SILDENAFIL) UNKNOWN [Suspect]
     Active Substance: SILDENAFIL
     Indication: PULMONARY ARTERIAL HYPERTENSION

REACTIONS (6)
  - Condition aggravated [None]
  - Pulmonary oedema [None]
  - Systemic sclerosis [None]
  - Pleural effusion [None]
  - Pulmonary arterial hypertension [None]
  - Acute myocardial infarction [None]
